FAERS Safety Report 8780493 (Version 1)
Quarter: 2012Q4

REPORT INFORMATION
  Report Type: Spontaneous
  Country: US (occurrence: None)
  Receive Date: 20120906
  Receipt Date: 20120906
  Transmission Date: 20130627
  Serious: No
  Sender: FDA-Public Use
  Company Number: None

PATIENT
  Age: 57 Year
  Sex: Male

DRUGS (1)
  1. OXALIPLATIN [Suspect]
     Route: 042
     Dates: start: 20120828, end: 20120828

REACTIONS (11)
  - Swollen tongue [None]
  - Hypoaesthesia oral [None]
  - Dysarthria [None]
  - Disturbance in attention [None]
  - Confusional state [None]
  - Headache [None]
  - Paraesthesia [None]
  - Gait disturbance [None]
  - Tremor [None]
  - Tremor [None]
  - Tandem gait test abnormal [None]
